FAERS Safety Report 22833409 (Version 2)
Quarter: 2024Q2

REPORT INFORMATION
  Report Type: Spontaneous
  Country: IN (occurrence: IN)
  Receive Date: 20230817
  Receipt Date: 20240416
  Transmission Date: 20240716
  Serious: Yes (Other)
  Sender: FDA-Public Use
  Company Number: IN-PFIZER INC-PV202200071723

PATIENT
  Age: 58 Year
  Sex: Female
  Weight: 88 kg

DRUGS (4)
  1. LORLATINIB [Suspect]
     Active Substance: LORLATINIB
     Indication: Lung neoplasm malignant
     Dosage: 100 MG, 1X/DAY
     Route: 048
     Dates: start: 2020
  2. OROFER XT [Concomitant]
     Dosage: UNK
  3. OROFER XT [Concomitant]
     Dosage: 1 UNK, 1X/DAY
  4. PANTOCID [Concomitant]
     Dosage: 40 MG 1B BF

REACTIONS (7)
  - Pericardial effusion [Unknown]
  - Encephalomalacia [Unknown]
  - Thyroid disorder [Unknown]
  - Dyspnoea [Unknown]
  - Positron emission tomogram abnormal [Unknown]
  - Weight decreased [Unknown]
  - Product dose omission issue [Unknown]

NARRATIVE: CASE EVENT DATE: 20230807
